FAERS Safety Report 4417064-1 (Version None)
Quarter: 2004Q2

REPORT INFORMATION
  Report Type: 
  Country: None (occurrence: None)
  Receive Date: 20040629
  Receipt Date: 20040426
  Transmission Date: 20050107
  Serious: No
  Sender: FDA-Public Use
  Company Number: US074260

PATIENT
  Age: 82 Year
  Sex: Male
  Weight: 98.5 kg

DRUGS (6)
  1. ARANESP [Suspect]
     Indication: RENAL FAILURE CHRONIC
     Dosage: 60 MCG, 1 IN 2 WEEKS, SC
     Route: 058
     Dates: start: 20040227, end: 20040423
  2. TORSEMIDE [Concomitant]
  3. HYDRALAZINE HCL [Concomitant]
  4. AMLODIPINE BESYLATE [Concomitant]
  5. NEPHRO-VITE [Concomitant]
  6. ASPIRIN [Concomitant]

REACTIONS (1)
  - RASH PRURITIC [None]
